FAERS Safety Report 11628816 (Version 1)
Quarter: 2015Q4

REPORT INFORMATION
  Report Type: Spontaneous
  Country: US (occurrence: US)
  Receive Date: 20151014
  Receipt Date: 20151014
  Transmission Date: 20160304
  Serious: No
  Sender: FDA-Public Use
  Company Number: US-TEVA-591463USA

PATIENT
  Age: 71 Year
  Sex: Female
  Weight: 50.85 kg

DRUGS (1)
  1. RISEDRONIC ACID [Suspect]
     Active Substance: RISEDRONIC ACID
     Indication: BONE DISORDER
     Dates: start: 20150701

REACTIONS (1)
  - Rash pruritic [Unknown]
